FAERS Safety Report 4119511 (Version 7)
Quarter: 2013Q4

REPORT INFORMATION
  Report Type: Spontaneous
  Country: US (occurrence: US)
  Receive Date: 20040325
  Receipt Date: 20131024
  Transmission Date: 20140711
  Serious: Yes (Hospitalization)
  Sender: FDA-Public Use
  Company Number: 193868

PATIENT
  Age: 46 Year
  Sex: Male

DRUGS (2)
  1. AVONEX [Suspect]
     Indication: MULTIPLE SCLEROSIS
     Route: 030
     Dates: start: 20030516, end: 200308
  2. AVONEX [Suspect]
     Indication: MULTIPLE SCLEROSIS
     Route: 030
     Dates: start: 200308

REACTIONS (21)
  - Hip arthroplasty [Recovered/Resolved]
  - Temperature regulation disorder [Unknown]
  - Hypotension [Unknown]
  - Thrombosis [Recovered/Resolved]
  - Arthritis [Recovered/Resolved]
  - Fall [Recovered/Resolved]
  - Gait disturbance [Unknown]
  - Limb injury [Unknown]
  - Device issue [Unknown]
  - Mobility decreased [Unknown]
  - Cold sweat [Unknown]
  - Amnesia [Unknown]
  - Intervertebral disc disorder [Not Recovered/Not Resolved]
  - Intervertebral disc protrusion [Unknown]
  - Skin ulcer [Unknown]
  - Cardiovascular disorder [Unknown]
  - Impaired healing [Unknown]
  - Procedural pain [Not Recovered/Not Resolved]
  - Wound [Not Recovered/Not Resolved]
  - Chills [Not Recovered/Not Resolved]
  - Malaise [Unknown]
